FAERS Safety Report 11187210 (Version 3)
Quarter: 2015Q3

REPORT INFORMATION
  Report Type: Spontaneous
  Country: US (occurrence: US)
  Receive Date: 20150615
  Receipt Date: 20150828
  Transmission Date: 20151125
  Serious: Yes (Death, Hospitalization, Other)
  Sender: FDA-Public Use
  Company Number: US-JNJFOC-20150505584

PATIENT
  Age: 59 Year
  Sex: Male

DRUGS (1)
  1. XARELTO [Suspect]
     Active Substance: RIVAROXABAN
     Indication: ANTICOAGULANT THERAPY
     Route: 048
     Dates: start: 201302, end: 201310

REACTIONS (5)
  - Death [Fatal]
  - Haemorrhage [Unknown]
  - Epistaxis [Unknown]
  - Haemorrhagic stroke [Unknown]
  - Blood urine present [Unknown]

NARRATIVE: CASE EVENT DATE: 201310
